FAERS Safety Report 8113729-9 (Version None)
Quarter: 2012Q1

REPORT INFORMATION
  Report Type: 
  Country: None (occurrence: None)
  Receive Date: 20120203
  Receipt Date: 20120124
  Transmission Date: 20120608
  Serious: Yes (Hospitalization, Other)
  Sender: FDA-Public Use
  Company Number: CA-JNJFOC-20120200866

PATIENT
  Sex: Male

DRUGS (1)
  1. REMICADE [Suspect]
     Indication: COLITIS ULCERATIVE
     Route: 042
     Dates: start: 20101201, end: 20110401

REACTIONS (3)
  - PNEUMONIA [None]
  - COLECTOMY [None]
  - DRUG INEFFECTIVE [None]
